FAERS Safety Report 5972566-1 (Version None)
Quarter: 2008Q4

REPORT INFORMATION
  Report Type: 
  Country: None (occurrence: None)
  Receive Date: 20081201
  Receipt Date: 20081127
  Transmission Date: 20090506
  Serious: Yes (Life-Threatening)
  Sender: FDA-Public Use
  Company Number: B0548366A

PATIENT
  Age: 50 Year
  Sex: Female
  Weight: 55 kg

DRUGS (3)
  1. TYVERB [Suspect]
     Dosage: 250MG PER DAY
     Route: 048
     Dates: start: 20081024, end: 20081101
  2. XELODA [Concomitant]
     Dosage: 3TAB TWICE PER DAY
     Route: 065
     Dates: start: 20081024, end: 20081101
  3. ATENOLOL [Concomitant]
     Indication: HYPERTONIA
     Dosage: 50MG PER DAY

REACTIONS (3)
  - ATRIAL FIBRILLATION [None]
  - ATRIAL TACHYCARDIA [None]
  - CARDIAC FAILURE [None]
